FAERS Safety Report 9523125 (Version 1)
Quarter: 2013Q1

REPORT INFORMATION
  Report Type: Spontaneous
  Country: US (occurrence: None)
  Receive Date: 20130305
  Receipt Date: 20130305
  Transmission Date: 20140127
  Serious: Yes (Other)
  Sender: FDA-Public Use
  Company Number: 163-21880-12072655

PATIENT
  Age: 54 Year
  Sex: Male
  Weight: 99.79 kg

DRUGS (13)
  1. REVLIMID [Suspect]
     Indication: PLASMA CELL MYELOMA
     Dosage: 10 MG, 21 IN 21 D, PO
     Route: 048
     Dates: start: 20101109
  2. ACYCLOVIR (ACICLOVIR) (UNKNOWN)? [Concomitant]
  3. ASPIRIN (ACETYLSALICYLIC ACID) (UNKNOWN) (ACETYLSALICYLIC ACID) [Concomitant]
  4. ATIVAN (LORAZEPAM) (UNKNOWN) [Concomitant]
  5. CELEXA (CITALOPRAM HYDROBROMIDE) (UNKNOWN) [Concomitant]
  6. FISH OIL (FISH OIL) (UNKNOWN) [Concomitant]
  7. FOLIC ACID (FOLIC ACID) (UNKNOWN) [Concomitant]
  8. LEVAQUIN (LEVOFLOXACIN) (UNKNOWN) [Concomitant]
  9. MULTIVITAMINS (MULTIVITAMINS) (UNKNOWN) [Concomitant]
  10. PRILOSEC (OMEPRAZOLE) (UNKNOWN) [Concomitant]
  11. VITAMIN B (VITAMIN B) (UNKNOWN) [Concomitant]
  12. VITAMIN D (ERGOCALCIFEROL) (UNKNOWN) [Concomitant]
  13. ZOMETA (ZOLEDRONIC ACID) (UNKNOWN) [Concomitant]

REACTIONS (2)
  - Fatigue [None]
  - Neuropathy peripheral [None]
